FAERS Safety Report 5910875-2 (Version None)
Quarter: 2008Q4

REPORT INFORMATION
  Report Type: 
  Country: None (occurrence: None)
  Receive Date: 20081007
  Receipt Date: 20080611
  Transmission Date: 20090506
  Serious: No
  Sender: FDA-Public Use
  Company Number: US-ASTRAZENECA-2008UW11689

PATIENT
  Age: 72 Year
  Sex: Female
  Weight: 86.2 kg

DRUGS (5)
  1. ARIMIDEX [Suspect]
     Indication: BREAST CANCER
     Route: 048
     Dates: start: 20060101
  2. LEVOXYL [Concomitant]
  3. TRIAMTERE/HCTZ [Concomitant]
  4. BEE-LIVE ENERGY SUPPLEMENTATION [Concomitant]
  5. CALCIUM [Concomitant]

REACTIONS (2)
  - GAIT DISTURBANCE [None]
  - PAIN IN EXTREMITY [None]
